FAERS Safety Report 7462215-8 (Version None)
Quarter: 2011Q2

REPORT INFORMATION
  Report Type: 
  Country: None (occurrence: None)
  Receive Date: 20110506
  Receipt Date: 20081215
  Transmission Date: 20111010
  Serious: Yes (Other)
  Sender: FDA-Public Use
  Company Number: US-BAYER-200840446NA

PATIENT
  Age: 42 Year
  Sex: Female
  Weight: 62.132 kg

DRUGS (20)
  1. VYTORIN [Concomitant]
  2. FUROSEMIDE [Concomitant]
     Dosage: 80 MG, UNK
  3. NOREPINEPHRINE BITARTRATE [Concomitant]
     Dosage: 4MG/4CC
     Route: 042
     Dates: start: 20020411, end: 20020411
  4. DOPAMINE HCL [Concomitant]
     Dosage: 3.78 MG, UNK
     Route: 042
     Dates: start: 20020411, end: 20020411
  5. PREVACID [Concomitant]
     Dosage: 30 MG, UNK
     Route: 048
  6. ESMOLOL [Concomitant]
     Dosage: 30 MG, UNK
     Route: 042
     Dates: start: 20020411, end: 20020411
  7. TRASYLOL [Suspect]
     Indication: COX-MAZE PROCEDURE
     Dosage: 40ML/HR INFUSION
     Route: 042
     Dates: start: 20020411, end: 20020411
  8. PROPOFOL [Concomitant]
     Dosage: 500MG/50CC
     Route: 042
     Dates: start: 20020411, end: 20020411
  9. EPINEPHRINE [Concomitant]
     Dosage: 375.3 MG, UNK
     Route: 042
     Dates: start: 20020411, end: 20020411
  10. FENTANYL [Concomitant]
     Dosage: 750 MG, UNK
     Route: 042
     Dates: start: 20020411, end: 20020411
  11. MIDAZOLAM [Concomitant]
     Dosage: 10 MG, UNK
     Route: 042
     Dates: start: 20020411, end: 20020411
  12. TRASYLOL [Suspect]
     Indication: MITRAL VALVE REPLACEMENT
     Dosage: 200 ML, UNK
     Route: 042
     Dates: start: 20020411, end: 20020411
  13. ZOCOR [Concomitant]
  14. LIPITOR [Concomitant]
     Dosage: 40 MG, UNK
     Route: 048
  15. NITROGLYCERIN [Concomitant]
     Dosage: 50MG/250CC,UNK
     Route: 042
     Dates: start: 20020411, end: 20020411
  16. PROTAMINE SULFATE [Concomitant]
     Dosage: 25CC/VIAL UNK, UNK
     Route: 042
     Dates: start: 20020411, end: 20020411
  17. PANCURONIUM BROMIDE [Concomitant]
     Dosage: 20 MG, UNK
     Route: 042
     Dates: start: 20020411, end: 20020411
  18. VANCOMYCIN [Concomitant]
     Dosage: UNK
     Route: 042
     Dates: start: 20020411, end: 20020411
  19. WARFARIN [Concomitant]
     Dosage: 7.5 MG, UNK
     Route: 048
  20. HEPARIN [Concomitant]
     Dosage: 21K/UNIT,UNK
     Route: 042
     Dates: start: 20020411, end: 20020411

REACTIONS (8)
  - INJURY [None]
  - RENAL FAILURE [None]
  - RENAL INJURY [None]
  - RENAL IMPAIRMENT [None]
  - UNEVALUABLE EVENT [None]
  - PAIN [None]
  - RENAL FAILURE ACUTE [None]
  - ANXIETY [None]
